FAERS Safety Report 7944131-8 (Version None)
Quarter: 2011Q4

REPORT INFORMATION
  Report Type: 
  Country: None (occurrence: None)
  Receive Date: 20111128
  Receipt Date: 20111115
  Transmission Date: 20120403
  Serious: Yes (Hospitalization, Other)
  Sender: FDA-Public Use
  Company Number: US-ASTRAZENECA-2010SE61173

PATIENT
  Age: 62 Year
  Sex: Female

DRUGS (6)
  1. METOPROLOL TARTRATE [Concomitant]
     Route: 048
  2. SYMBICORT [Suspect]
     Indication: CHRONIC OBSTRUCTIVE PULMONARY DISEASE
     Dosage: 160/4.5 MCGS 2, BID
     Route: 055
     Dates: start: 20090201, end: 20101101
  3. PROZAC [Concomitant]
  4. ARIMIDEX [Suspect]
     Route: 048
  5. ANXIETY MEDICATION [Concomitant]
     Dosage: PRN
  6. SYMBICORT [Suspect]
     Indication: ASTHMA
     Dosage: 160/4.5 MCGS 2, BID
     Route: 055
     Dates: start: 20090201, end: 20101101

REACTIONS (8)
  - MALIGNANT NEOPLASM OF SPINAL CORD [None]
  - FATIGUE [None]
  - BREAST CANCER [None]
  - VOMITING [None]
  - MALAISE [None]
  - NEOPLASM MALIGNANT [None]
  - DRUG DOSE OMISSION [None]
  - DYSPNOEA [None]
